FAERS Safety Report 4946556-1 (Version None)
Quarter: 2006Q1

REPORT INFORMATION
  Report Type: 
  Country: None (occurrence: None)
  Receive Date: 20060317
  Receipt Date: 20060315
  Transmission Date: 20060701
  Serious: Yes (Other)
  Sender: FDA-Public Use
  Company Number: US-GLAXOSMITHKLINE-A0597677A

PATIENT
  Age: 58 Year
  Sex: Male

DRUGS (6)
  1. LAMICTAL [Suspect]
     Indication: BIPOLAR DISORDER
     Dosage: 100MG PER DAY
     Route: 048
     Dates: start: 20050101
  2. PLAVIX [Concomitant]
  3. ATENOLOL [Concomitant]
  4. ASPIRIN [Concomitant]
  5. LOVASTATIN [Concomitant]
  6. NICOTINE [Concomitant]

REACTIONS (9)
  - ANXIETY [None]
  - BRADYPHRENIA [None]
  - DISTURBANCE IN ATTENTION [None]
  - MIOSIS [None]
  - PHARYNGITIS [None]
  - PRURITUS [None]
  - RASH [None]
  - TREMOR [None]
  - URTICARIA [None]
